FAERS Safety Report 9196183 (Version 1)
Quarter: 2013Q1

REPORT INFORMATION
  Report Type: Spontaneous
  Country: US (occurrence: None)
  Receive Date: 20130328
  Receipt Date: 20130328
  Transmission Date: 20140127
  Serious: Yes (Death)
  Sender: FDA-Public Use
  Company Number: None

PATIENT
  Age: 88 Year
  Sex: Male
  Weight: 81.65 kg

DRUGS (2)
  1. DEPOMEDROL [Suspect]
     Indication: ARTHRALGIA
     Dosage: 1 DOSE
     Dates: start: 20121121, end: 20121121
  2. DEPOMEDROL [Suspect]
     Indication: ARTHRALGIA
     Dosage: 1 DOSE
     Dates: start: 20121121, end: 20121121

REACTIONS (4)
  - Cryptococcal fungaemia [None]
  - Meningitis cryptococcal [None]
  - Product contamination microbial [None]
  - Pneumonia [None]
